FAERS Safety Report 8505300-1 (Version None)
Quarter: 2012Q2

REPORT INFORMATION
  Report Type: 
  Country: None (occurrence: None)
  Receive Date: 20120405
  Receipt Date: 20100625
  Transmission Date: 20120825
  Serious: Yes (Other)
  Sender: FDA-Public Use
  Company Number: PHHY2010US35732

PATIENT
  Age: 87 Year
  Sex: Female

DRUGS (17)
  1. RECLAST [Suspect]
     Indication: OSTEOPOROSIS
     Dosage: 5 MG YEARLY, INTRAVENOUS
     Route: 042
     Dates: start: 20090101
  2. RECLAST [Suspect]
     Indication: OSTEOPOROSIS
     Dosage: 5 MG YEARLY, INTRAVENOUS
     Route: 042
     Dates: start: 20100514
  3. AMOXICILLIN [Concomitant]
  4. CALCIUM CARBONATE [Concomitant]
  5. VITAMIN E [Concomitant]
  6. ALBUTEROL [Concomitant]
  7. LEVOTHYROXINE SODIUM [Concomitant]
  8. ZOLOFT [Concomitant]
  9. SERTRALINE HYDROCHLORIDE [Concomitant]
  10. METOPROLOL TARTRATE [Concomitant]
  11. SINGULAIR [Concomitant]
  12. AGGRENOX [Concomitant]
  13. PRAVASTATIN [Concomitant]
  14. SINGULAIR [Concomitant]
  15. NASONEX [Concomitant]
  16. AMLODIPINE [Concomitant]
  17. PREDNISONE TAB [Concomitant]

REACTIONS (3)
  - ARTHRALGIA [None]
  - PAIN [None]
  - PAIN IN EXTREMITY [None]
